FAERS Safety Report 13354083 (Version 1)
Quarter: 2017Q1

REPORT INFORMATION
  Report Type: Spontaneous
  Country: US (occurrence: US)
  Receive Date: 20170320
  Receipt Date: 20170320
  Transmission Date: 20170429
  Serious: Yes (Life-Threatening, Hospitalization)
  Sender: FDA-Public Use
  Company Number: None

PATIENT
  Age: 66 Year
  Sex: Male

DRUGS (3)
  1. RUXOLITINIB [Suspect]
     Active Substance: RUXOLITINIB
     Indication: POLYCYTHAEMIA VERA
     Route: 048
     Dates: start: 20140711, end: 20161227
  2. LATANOPROST OPHTHALMIC [Concomitant]
  3. COLCHICINE. [Concomitant]
     Active Substance: COLCHICINE

REACTIONS (5)
  - Chills [None]
  - Haemoptysis [None]
  - Dyspnoea [None]
  - Oedema peripheral [None]
  - Pulmonary haemorrhage [None]

NARRATIVE: CASE EVENT DATE: 20161227
